FAERS Safety Report 9346042 (Version 1)
Quarter: 2013Q2

REPORT INFORMATION
  Report Type: Spontaneous
  Country: IT (occurrence: IT)
  Receive Date: 20130613
  Receipt Date: 20130613
  Transmission Date: 20140414
  Serious: Yes (Hospitalization)
  Sender: FDA-Public Use
  Company Number: IT-SANOFI-AVENTIS-2013SA058223

PATIENT
  Age: 82 Year
  Sex: Female

DRUGS (2)
  1. PLAVIX [Suspect]
     Indication: MYOCARDIAL ISCHAEMIA
     Dates: start: 20130101, end: 20130520
  2. COUMADIN [Suspect]
     Indication: ATRIAL FIBRILLATION
     Route: 048
     Dates: start: 20130101, end: 20130520

REACTIONS (5)
  - Syncope [Recovered/Resolved]
  - Gastric ulcer haemorrhage [Recovered/Resolved]
  - Faeces discoloured [Recovered/Resolved]
  - Anaemia [Recovered/Resolved]
  - Overdose [Recovered/Resolved]
